FAERS Safety Report 15034923 (Version 1)
Quarter: 2018Q2

REPORT INFORMATION
  Report Type: Report from Study
  Country: BR (occurrence: BR)
  Receive Date: 20180620
  Receipt Date: 20180620
  Transmission Date: 20180711
  Serious: Yes (Other)
  Sender: FDA-Public Use
  Company Number: BR-ROCHE-2139989

PATIENT
  Age: 52 Year
  Sex: Male
  Weight: 73 kg

DRUGS (3)
  1. XOLAIR [Suspect]
     Active Substance: OMALIZUMAB
     Indication: URTICARIA
     Route: 058
     Dates: start: 20180301, end: 20180415
  2. XOLAIR [Suspect]
     Active Substance: OMALIZUMAB
     Indication: ANGIOEDEMA
  3. AMOXICILLIN. [Suspect]
     Active Substance: AMOXICILLIN
     Indication: RESPIRATORY TRACT INFECTION BACTERIAL
     Route: 065
     Dates: start: 20180526, end: 20180601

REACTIONS (10)
  - Decreased immune responsiveness [Unknown]
  - Dysentery [Recovered/Resolved]
  - Food allergy [Recovered/Resolved]
  - Angioedema [Recovered/Resolved]
  - Urticaria [Recovered/Resolved]
  - Pyrexia [Recovered/Resolved]
  - Nervousness [Not Recovered/Not Resolved]
  - Respiratory tract infection bacterial [Recovered/Resolved]
  - Fear [Not Recovered/Not Resolved]
  - Nasopharyngitis [Unknown]

NARRATIVE: CASE EVENT DATE: 20180405
